FAERS Safety Report 10157385 (Version 1)
Quarter: 2014Q2

REPORT INFORMATION
  Report Type: Spontaneous
  Country: FR (occurrence: FR)
  Receive Date: 20140507
  Receipt Date: 20140507
  Transmission Date: 20141212
  Serious: Yes (Death, Life-Threatening, Hospitalization)
  Sender: FDA-Public Use
  Company Number: FR-PFIZER INC-2014120354

PATIENT
  Age: 63 Year
  Sex: Male
  Weight: 68.8 kg

DRUGS (6)
  1. ALDACTONE [Suspect]
     Route: 048
  2. DIFFU K [Interacting]
     Route: 048
  3. SURGAM [Interacting]
     Indication: PAROTID ABSCESS
     Dosage: 100 MG, 3X/DAY
     Route: 048
     Dates: start: 20140331, end: 20140402
  4. GLUCOPHAGE [Concomitant]
     Indication: TYPE 2 DIABETES MELLITUS
  5. AUGMENTIN [Concomitant]
     Indication: PAROTID ABSCESS
     Dosage: UNK
     Dates: start: 20140331
  6. INEXIUM /01479302/ [Concomitant]
     Indication: PAROTID ABSCESS
     Dosage: UNK
     Dates: start: 20140331

REACTIONS (5)
  - Drug interaction [Unknown]
  - Renal failure acute [Unknown]
  - Hyperkalaemia [Recovered/Resolved]
  - Septic shock [Fatal]
  - Multi-organ failure [Fatal]
